FAERS Safety Report 11117131 (Version 1)
Quarter: 2015Q2

REPORT INFORMATION
  Report Type: Spontaneous
  Country: US (occurrence: US)
  Receive Date: 20150515
  Receipt Date: 20150515
  Transmission Date: 20150821
  Serious: Yes (Hospitalization)
  Sender: FDA-Public Use
  Company Number: US-ASTRAZENECA-2015SE43733

PATIENT
  Age: 71 Year
  Sex: Male

DRUGS (11)
  1. ASPRIN [Concomitant]
     Active Substance: ASPIRIN
     Indication: SUPPLEMENTATION THERAPY
     Dates: start: 20150430
  2. BRILINTA [Suspect]
     Active Substance: TICAGRELOR
     Indication: ELECTROCARDIOGRAM ST SEGMENT ELEVATION
     Route: 048
     Dates: start: 20150429, end: 20150429
  3. BRILINTA [Suspect]
     Active Substance: TICAGRELOR
     Indication: MYOCARDIAL INFARCTION
     Route: 048
     Dates: start: 20150429, end: 20150429
  4. BRILINTA [Suspect]
     Active Substance: TICAGRELOR
     Indication: CORONARY ARTERIAL STENT INSERTION
     Route: 048
     Dates: start: 20150430
  5. VATOSA [Concomitant]
     Indication: DIABETES MELLITUS
  6. ASPRIN [Concomitant]
     Active Substance: ASPIRIN
     Indication: SUPPLEMENTATION THERAPY
     Dates: start: 20150429, end: 20150429
  7. LISINOPRIL. [Suspect]
     Active Substance: LISINOPRIL
     Route: 048
  8. BRILINTA [Suspect]
     Active Substance: TICAGRELOR
     Indication: CORONARY ARTERIAL STENT INSERTION
     Route: 048
     Dates: start: 20150429, end: 20150429
  9. BRILINTA [Suspect]
     Active Substance: TICAGRELOR
     Indication: ELECTROCARDIOGRAM ST SEGMENT ELEVATION
     Route: 048
     Dates: start: 20150430
  10. BRILINTA [Suspect]
     Active Substance: TICAGRELOR
     Indication: MYOCARDIAL INFARCTION
     Route: 048
     Dates: start: 20150430
  11. UNSPECIFIED METOPROLOL [Suspect]
     Active Substance: METOPROLOL
     Route: 065

REACTIONS (1)
  - Petechiae [Unknown]

NARRATIVE: CASE EVENT DATE: 2015
